FAERS Safety Report 15672565 (Version 3)
Quarter: 2019Q4

REPORT INFORMATION
  Report Type: Report from Study
  Country: US (occurrence: US)
  Receive Date: 20181129
  Receipt Date: 20191211
  Transmission Date: 20200122
  Serious: No
  Sender: FDA-Public Use
  Company Number: US-TESARO-US-2017TSO04695

PATIENT
  Sex: Female

DRUGS (8)
  1. NIRAPARIB CAPSULE [Suspect]
     Active Substance: NIRAPARIB
     Indication: OVARIAN CANCER
     Dosage: 300 MG, QD (ALTERNATING WITH 200 MG)
     Route: 048
     Dates: start: 20171215
  2. NIRAPARIB CAPSULE [Suspect]
     Active Substance: NIRAPARIB
     Dosage: 300 MG, DAILY
     Route: 048
  3. NIRAPARIB CAPSULE [Suspect]
     Active Substance: NIRAPARIB
     Dosage: 200 MG, QD (ALTERNATING WITH 300 MG)
     Route: 048
     Dates: start: 20171215
  4. NIRAPARIB CAPSULE [Suspect]
     Active Substance: NIRAPARIB
     Dosage: 300 MG, UNK
     Route: 048
  5. NIRAPARIB CAPSULE [Suspect]
     Active Substance: NIRAPARIB
     Dosage: 300 MG, QD
     Route: 048
  6. TAMOXIFEN [Concomitant]
     Active Substance: TAMOXIFEN
     Indication: PRODUCT USED FOR UNKNOWN INDICATION
  7. NIRAPARIB CAPSULE [Suspect]
     Active Substance: NIRAPARIB
     Dosage: 300 MG, QD
     Route: 048
     Dates: start: 20171229
  8. NIRAPARIB CAPSULE [Suspect]
     Active Substance: NIRAPARIB
     Dosage: 300 MG, DAILY
     Route: 048

REACTIONS (13)
  - Asthma [Unknown]
  - White blood cell count decreased [Unknown]
  - Nasopharyngitis [Recovered/Resolved]
  - Constipation [Not Recovered/Not Resolved]
  - Fatigue [Recovering/Resolving]
  - Nausea [Unknown]
  - Red blood cell count decreased [Unknown]
  - Osteoporosis [Not Recovered/Not Resolved]
  - Infection [Unknown]
  - Haemoglobin decreased [Unknown]
  - Blood creatinine increased [Not Recovered/Not Resolved]
  - Inappropriate schedule of product administration [Unknown]
  - Drug ineffective [Unknown]
